FAERS Safety Report 15703064 (Version 1)
Quarter: 2018Q4

REPORT INFORMATION
  Report Type: Spontaneous
  Country: US (occurrence: US)
  Receive Date: 20181208
  Receipt Date: 20181208
  Transmission Date: 20190205
  Serious: Yes (Other)
  Sender: FDA-Public Use
  Company Number: None

PATIENT
  Age: 57 Year
  Sex: Male
  Weight: 94.5 kg

DRUGS (5)
  1. FOSINOPRIL SODIUM 10 MG [Concomitant]
  2. METOPROLOL SUCC ER 25 MG TAB, UU, 25 MG [Concomitant]
     Active Substance: METOPROLOL SUCCINATE
  3. PRAVASTATIN SODIUM 80 MG [Concomitant]
  4. MUCINEX DM [Suspect]
     Active Substance: DEXTROMETHORPHAN HYDROBROMIDE\GUAIFENESIN
     Indication: COUGH
     Dosage: ?          QUANTITY:20 TABLET(S);?
     Route: 048
     Dates: start: 20181203, end: 20181206
  5. ASPIRIN 81 MG [Concomitant]
     Active Substance: ASPIRIN

REACTIONS (1)
  - Rash generalised [None]

NARRATIVE: CASE EVENT DATE: 20181206
